FAERS Safety Report 25859188 (Version 6)
Quarter: 2025Q4

REPORT INFORMATION
  Report Type: Report from Study
  Country: CA (occurrence: CA)
  Receive Date: 20250929
  Receipt Date: 20251224
  Transmission Date: 20260119
  Serious: Yes (Other)
  Sender: PFIZER
  Company Number: CA-PFIZER INC-202500037947

PATIENT
  Age: 53 Year
  Sex: Female
  Weight: 103.9 kg

DRUGS (9)
  1. IXIFI [Suspect]
     Active Substance: INFLIXIMAB-QBTX
     Indication: Crohn^s disease
     Dosage: 700 MG EVERY 4 WEEKS
     Route: 042
     Dates: start: 20250516
  2. IXIFI [Suspect]
     Active Substance: INFLIXIMAB-QBTX
     Dosage: 700 MG, EVERY 6 WEEKS
     Route: 042
  3. IXIFI [Suspect]
     Active Substance: INFLIXIMAB-QBTX
     Dosage: 700 MG, EVERY 6 WEEKS
     Route: 042
     Dates: start: 20250808
  4. IXIFI [Suspect]
     Active Substance: INFLIXIMAB-QBTX
     Dosage: 700 MG, EVERY 6 WEEKS
     Route: 042
     Dates: start: 20250919
  5. IXIFI [Suspect]
     Active Substance: INFLIXIMAB-QBTX
     Dosage: 700 MG, EVERY 6 WEEKS
     Route: 042
  6. IXIFI [Suspect]
     Active Substance: INFLIXIMAB-QBTX
     Dosage: 700 MG, EVERY 6 WEEKS
     Route: 042
  7. APO DOXY [DOXYCYCLINE HYDROCHLORIDE] [Concomitant]
     Indication: Hidradenitis
     Dosage: UNK, 1X/DAY
     Dates: start: 20250915
  8. INFLUENZA VIRUS VACCINE [Concomitant]
     Active Substance: INFLUENZA VIRUS VACCINE
     Indication: Immunisation
     Dosage: DOSE NUMBER UNKNOWN, SINGLE
  9. COVID-19 VACCINE [Concomitant]
     Indication: COVID-19 immunisation
     Dosage: DOSE NUMBER UNKNOWN, SINGLE
     Dates: start: 20251016, end: 20251016

REACTIONS (13)
  - Genital cyst [Recovered/Resolved]
  - Fatigue [Recovered/Resolved]
  - Cardiac murmur [Unknown]
  - Bone pain [Unknown]
  - Oral candidiasis [Recovering/Resolving]
  - Nasopharyngitis [Recovering/Resolving]
  - Urinary tract infection [Recovered/Resolved]
  - Pharyngeal paraesthesia [Recovering/Resolving]
  - Rhinorrhoea [Recovering/Resolving]
  - Headache [Recovered/Resolved]
  - Oropharyngeal pain [Recovered/Resolved]
  - Diarrhoea [Recovered/Resolved]
  - Off label use [Unknown]

NARRATIVE: CASE EVENT DATE: 20250501
